FAERS Safety Report 4568468-8 (Version None)
Quarter: 2005Q1

REPORT INFORMATION
  Report Type: 
  Country: None (occurrence: None)
  Receive Date: 20050131
  Receipt Date: 20050118
  Transmission Date: 20050727
  Serious: Yes (Other)
  Sender: FDA-Public Use
  Company Number: 2004119964

PATIENT
  Sex: Female

DRUGS (1)
  1. CELEBREX [Suspect]
     Indication: CHONDROPATHY
     Dosage: 600M MG (200M MG, 3 IN 1 D)I,ORAL
     Route: 048

REACTIONS (1)
  - NO ADVERSE EFFECT [None]
